FAERS Safety Report 8959026 (Version 1)
Quarter: 2012Q4

REPORT INFORMATION
  Report Type: 
  Country: BR (occurrence: BR)
  Receive Date: 20121212
  Receipt Date: 20121212
  Transmission Date: 20130627
  Serious: Yes (Death, Hospitalization, Other)
  Sender: FDA-Public Use
  Company Number: BR-009507513-1212BRA003453

PATIENT
  Age: 50 Year
  Sex: Female
  Weight: 80 kg

DRUGS (14)
  1. SITAGLIPTIN PHOSPHATE [Suspect]
     Indication: DIABETES MELLITUS
     Dosage: 100 mg, qd
     Route: 048
     Dates: start: 200701, end: 20081028
  2. SITAGLIPTIN PHOSPHATE [Suspect]
     Dosage: UNK
  3. ETORICOXIB [Suspect]
     Dosage: 120 mg, UNK
     Dates: start: 200807, end: 20081007
  4. ETORICOXIB [Suspect]
     Dosage: UNK
  5. CAPECITABINE [Concomitant]
     Dosage: 1150 mg, bid
     Route: 048
     Dates: start: 20081007, end: 20081021
  6. BISOPROLOL [Concomitant]
     Dosage: 10 mg, qd
     Route: 048
     Dates: start: 200609, end: 20081028
  7. ALPRAZOLAM [Concomitant]
     Indication: ANXIETY
     Dosage: UNK, qd
     Route: 048
     Dates: start: 200010, end: 20081028
  8. FLUOXETINE [Concomitant]
     Indication: FIBROMYALGIA
     Dosage: 20 mg, qd
     Route: 048
     Dates: start: 199201, end: 200810
  9. ZOLPIDEM TARTRATE [Concomitant]
     Indication: INSOMNIA
     Dosage: UNK
     Dates: start: 200507, end: 20081028
  10. DOMPERIDONE [Concomitant]
     Indication: GASTROOESOPHAGEAL REFLUX DISEASE
     Dosage: 3 DF, qd
     Route: 048
     Dates: start: 200505, end: 20081028
  11. PANTOPRAZOLE [Concomitant]
     Indication: GASTROOESOPHAGEAL REFLUX DISEASE
     Dosage: 1 DF, qd
     Route: 048
     Dates: start: 200505, end: 20081028
  12. MORPHINE [Concomitant]
     Indication: BONE PAIN
     Dosage: 10 mg, qd
     Route: 048
     Dates: start: 200806, end: 20081007
  13. ACHE GERIATON [Concomitant]
     Indication: VITAMIN SUPPLEMENTATION
     Dosage: 1 DF, qd
     Route: 048
     Dates: start: 200807, end: 20081028
  14. DEXCHLORPHENIRAMINE MALEATE [Concomitant]
     Indication: DYSPNOEA
     Dosage: 2 mg, UNK
     Route: 048
     Dates: start: 20081006, end: 20081006

REACTIONS (2)
  - Respiratory failure [Fatal]
  - Dehydration [Recovered/Resolved]
